FAERS Safety Report 5571478-5 (Version None)
Quarter: 2007Q4

REPORT INFORMATION
  Report Type: 
  Country: None (occurrence: None)
  Receive Date: 20071221
  Receipt Date: 20071212
  Transmission Date: 20080405
  Serious: Yes (Hospitalization)
  Sender: FDA-Public Use
  Company Number: FR-ROCHE-536885

PATIENT
  Age: 55 Year
  Sex: Male

DRUGS (8)
  1. RIVOTRIL [Suspect]
     Indication: DRUG USE FOR UNKNOWN INDICATION
     Route: 048
     Dates: end: 20071004
  2. RIVOTRIL [Suspect]
     Route: 048
     Dates: start: 20071005
  3. CIFLOX [Interacting]
     Indication: DRUG USE FOR UNKNOWN INDICATION
     Route: 048
     Dates: start: 20071005, end: 20071007
  4. TIORFAN [Concomitant]
     Dates: start: 20071005
  5. FLAGYL [Concomitant]
     Dates: start: 20071005
  6. LODOXAMIDE [Concomitant]
     Dates: start: 20071005
  7. TRIMEBUTINE [Concomitant]
     Dates: start: 20071005
  8. NIFUROXAZIDE [Concomitant]
     Dates: start: 20071005

REACTIONS (2)
  - CONVULSION [None]
  - DRUG INTERACTION [None]
